FAERS Safety Report 7965315-9 (Version None)
Quarter: 2011Q4

REPORT INFORMATION
  Report Type: 
  Country: None (occurrence: None)
  Receive Date: 20111208
  Receipt Date: 20111202
  Transmission Date: 20120403
  Serious: Yes (Other)
  Sender: FDA-Public Use
  Company Number: US-BAYER-201041944NA

PATIENT
  Age: 56 Year
  Sex: Female
  Weight: 68.934 kg

DRUGS (20)
  1. TRASYLOL [Suspect]
     Dosage: 100MG LOADING DOSE
     Route: 042
     Dates: start: 19950329
  2. EXTRA STRENGTH TYLENOL [Concomitant]
     Dosage: 2 EVERY 4 HOURS ASS NEEDED FOR PAIN
     Route: 048
  3. ACETYLSALICYLIC ACID SRT [Concomitant]
  4. PEPCID [Concomitant]
     Dosage: 20 MG, BID
     Route: 048
  5. PROTAMINE SULFATE [Concomitant]
     Dosage: 65 ML, UNK
     Dates: start: 19950329
  6. TRASYLOL [Suspect]
     Indication: CORONARY ARTERY BYPASS
     Dosage: 1 ML, TEST DOSE
     Route: 042
     Dates: start: 19950329, end: 19950329
  7. TRASYLOL [Suspect]
     Dosage: 25ML/HOUR INFUSION
     Route: 042
     Dates: start: 19950329
  8. CAPOTEN [Concomitant]
     Dosage: 12.5 MG, TID
     Route: 048
  9. LESCOL [Concomitant]
     Dosage: 20 MG, QD
     Route: 048
  10. LASIX [Concomitant]
     Dosage: 40 MG, QD
     Route: 048
  11. NORVASC [Concomitant]
     Route: 048
  12. NITROGLYCERIN [Concomitant]
     Dosage: 0.4 MG, PRN CHEST PAIN
     Route: 060
  13. NITROGLYCERIN [Concomitant]
     Dosage: UNK
     Route: 042
     Dates: start: 19950329
  14. CARDENE [Concomitant]
     Dosage: TWICE DAILY
     Route: 048
  15. TAGAMET [Concomitant]
     Dosage: 400 MG, BID
     Route: 048
  16. PERCOCET [OXYCODONE HYDROCHLORIDE,OXYCODONE TEREPHTHALATE,PARACETA [Concomitant]
     Dosage: 2 EVERY 4 HOURS AS NEEDED FOR PAIN
     Route: 048
  17. LOPRESSOR [Concomitant]
     Route: 048
  18. POTASSIUM CHLORIDE [Concomitant]
     Dosage: 20 MBQ, TID
     Route: 048
  19. TRASYLOL [Suspect]
     Dosage: PUMP PRIME: 100ML
     Route: 042
     Dates: start: 19950329
  20. LANOXIN [Concomitant]
     Dosage: 0.125MG/DAILY
     Route: 048

REACTIONS (10)
  - STRESS [None]
  - UNEVALUABLE EVENT [None]
  - FEAR [None]
  - RENAL IMPAIRMENT [None]
  - INJURY [None]
  - ANXIETY [None]
  - RENAL INJURY [None]
  - EMOTIONAL DISTRESS [None]
  - PAIN [None]
  - RENAL FAILURE [None]
